FAERS Safety Report 19585328 (Version 1)
Quarter: 2021Q3

REPORT INFORMATION
  Report Type: Spontaneous
  Country: US (occurrence: US)
  Receive Date: 20210720
  Receipt Date: 20210720
  Transmission Date: 20211014
  Serious: Yes (Hospitalization)
  Sender: FDA-Public Use
  Company Number: US-SLATE RUN PHARMACEUTICALS-21US000587

PATIENT

DRUGS (1)
  1. CINACALCET HYDROCHLORIDE. [Suspect]
     Active Substance: CINACALCET HYDROCHLORIDE
     Indication: HYPERPARATHYROIDISM PRIMARY
     Dosage: 30 MILLIGRAM, QD

REACTIONS (6)
  - Hypocalcaemia [Recovered/Resolved]
  - Parathyroid disorder [Unknown]
  - Off label use [Recovered/Resolved]
  - Hyperphosphataemia [Unknown]
  - Blood parathyroid hormone decreased [Recovered/Resolved]
  - Paraesthesia [Recovered/Resolved]
